FAERS Safety Report 5839056-8 (Version None)
Quarter: 2008Q3

REPORT INFORMATION
  Report Type: 
  Country: None (occurrence: None)
  Receive Date: 20080808
  Receipt Date: 20080801
  Transmission Date: 20090109
  Serious: Yes (Other)
  Sender: FDA-Public Use
  Company Number: US-GENENTECH-265692

PATIENT
  Age: 59 Year
  Sex: Female

DRUGS (19)
  1. RITUXIMAB [Suspect]
     Indication: B-CELL LYMPHOMA
     Dosage: 375 MG/M2, UNK
     Route: 042
     Dates: start: 20070629
  2. CYCLOPHOSPHAMIDE [Suspect]
     Indication: B-CELL LYMPHOMA
     Dosage: 300 MG/M2, Q12H
     Route: 042
     Dates: start: 20070629
  3. MESNA [Suspect]
     Indication: B-CELL LYMPHOMA
     Dosage: 600 MG/M2, UNK
     Route: 042
     Dates: start: 20070629
  4. DOXORUBICIN HCL [Suspect]
     Indication: B-CELL LYMPHOMA
     Dosage: 50 MG/M2, DAY 5
     Route: 042
     Dates: start: 20070629
  5. VINCRISTINE [Suspect]
     Indication: B-CELL LYMPHOMA
     Dosage: 1.4 MG/M2, DAYS 5 + 12
     Route: 042
     Dates: start: 20070629
  6. CIPROFLOXACIN [Concomitant]
     Indication: INFECTION PROPHYLAXIS
  7. CRESTOR [Concomitant]
     Indication: DRUG USE FOR UNKNOWN INDICATION
  8. DEXAMETHASONE [Concomitant]
     Indication: DRUG USE FOR UNKNOWN INDICATION
  9. EPIVIR-HBV [Concomitant]
     Indication: HEPATITIS B IMMUNISATION
  10. FLUCONAZOLE [Concomitant]
     Indication: INFECTION PROPHYLAXIS
  11. HEPARIN LOCK-FLUSH [Concomitant]
     Indication: CATHETER RELATED INFECTION
  12. LORAZEPAM [Concomitant]
     Indication: ANXIETY
  13. NEUPOGEN [Concomitant]
     Indication: WHITE BLOOD CELL COUNT
  14. OXYCODONE HCL [Concomitant]
     Indication: PAIN
  15. PROMETHAZINE HCL [Concomitant]
     Indication: NAUSEA
  16. PROMETHAZINE HCL [Concomitant]
     Indication: VOMITING
  17. VALTREX [Concomitant]
     Indication: INFECTION PROPHYLAXIS
  18. ZOFRAN [Concomitant]
     Indication: NAUSEA
  19. ZOFRAN [Concomitant]
     Indication: VOMITING

REACTIONS (1)
  - THROMBOSIS [None]
